FAERS Safety Report 9387430 (Version 1)
Quarter: 2013Q3

REPORT INFORMATION
  Report Type: Spontaneous
  Country: SK (occurrence: SK)
  Receive Date: 20130708
  Receipt Date: 20130708
  Transmission Date: 20140515
  Serious: Yes (Hospitalization)
  Sender: FDA-Public Use
  Company Number: SK-SANOFI-AVENTIS-2013SA068209

PATIENT
  Age: 74 Year
  Sex: Male
  Weight: 75 kg

DRUGS (1)
  1. ELIGARD [Suspect]
     Indication: PROSTATE CANCER
     Dosage: FREQUENCY : EVERY THREE MONTHS
     Route: 065
     Dates: start: 20120515

REACTIONS (1)
  - Thrombophlebitis [Not Recovered/Not Resolved]
